FAERS Safety Report 7914933-2 (Version None)
Quarter: 2011Q4

REPORT INFORMATION
  Report Type: 
  Country: None (occurrence: None)
  Receive Date: 20111115
  Receipt Date: 20111107
  Transmission Date: 20120403
  Serious: Yes (Hospitalization)
  Sender: FDA-Public Use
  Company Number: US-ROCHE-1011597

PATIENT

DRUGS (6)
  1. CARBOPLATIN [Suspect]
     Indication: BREAST CANCER METASTATIC
     Dosage: 2 AUC OVER 60 MIN ON DAY1,8 AND 15.
     Route: 042
  2. PACLITAXEL [Suspect]
     Indication: BREAST CANCER METASTATIC
     Dosage: OVER 60 MIN ON DAY1,8 AND 15.
     Route: 042
  3. AVASTIN [Suspect]
     Indication: BREAST CANCER METASTATIC
     Dosage: OVER 30-90 MINS ON DAYS 1 AND 15.
     Route: 042
     Dates: start: 20090918
  4. DEXAMETHASONE [Suspect]
     Indication: PRODUCT USED FOR UNKNOWN INDICATION
  5. HERCEPTIN [Suspect]
     Indication: BREAST CANCER METASTATIC
     Dosage: LOADING DOSE,OVER 90 MIN ON DAY1,CYCLE1.
     Route: 042
     Dates: start: 20090918
  6. HERCEPTIN [Suspect]
     Dosage: OVER 30 MIN ON DAY1,8,15 AND 22.
     Route: 042

REACTIONS (1)
  - PSYCHOTIC DISORDER [None]
